FAERS Safety Report 9162105 (Version 4)
Quarter: 2013Q4

REPORT INFORMATION
  Report Type: Report from Study
  Country: JP (occurrence: JP)
  Receive Date: 20130314
  Receipt Date: 20131230
  Transmission Date: 20140711
  Serious: Yes (Death)
  Sender: FDA-Public Use
  Company Number: JP-009507513-1303JPN006473

PATIENT
  Age: 73 Year
  Sex: Female

DRUGS (8)
  1. REMERON [Suspect]
     Indication: DEPRESSION
     Dosage: 1 DF, QD, TAKEN ONCE
     Route: 048
     Dates: start: 20110124, end: 20120114
  2. CONIEL [Concomitant]
     Indication: HYPERTENSION
     Dosage: 8 MG, QD, DIVIDED DOSE FREQUENCY UNKNOWN
     Route: 048
     Dates: start: 20090519, end: 20120114
  3. KERLONG [Concomitant]
     Indication: HYPERTENSION
     Dosage: 10 MG, QD, DIVIDED DOSE FREQUENCY UNKNOWN
     Route: 048
     Dates: start: 20070526, end: 20120114
  4. OLMETEC [Concomitant]
     Indication: HYPERTENSION
     Dosage: 20 MG, QD, DIVIDED DOSE FREQUENCY UNKNOWN
     Route: 048
     Dates: start: 20070526, end: 20120114
  5. MYSLEE [Concomitant]
     Indication: INSOMNIA
     Dosage: 10 MG, QD, DIVIDED DOSE FREQUENCY UNKNOWN
     Route: 048
     Dates: start: 20080616, end: 20120113
  6. CRESTOR [Concomitant]
     Indication: HYPERCHOLESTEROLAEMIA
     Dosage: 5 MG, QD, DIVIDED DOSE FREQUENCY UNKNOWN
     Route: 048
     Dates: start: 20100112, end: 20120114
  7. FLUITRAN [Concomitant]
     Indication: HYPERTENSION
     Dosage: 1 MG, QD, DIVIDED DOSE FREQUENCY UNKNOWN
     Route: 048
     Dates: start: 20100415, end: 20120114
  8. LEXOTAN [Concomitant]
     Indication: PSYCHOSOMATIC DISEASE
     Dosage: 5 MG, QD, DIVIDED DOSE FREQUENCY UNKNOWN;FORMULATION- POR
     Route: 048
     Dates: start: 20090622, end: 20120114

REACTIONS (3)
  - Completed suicide [Fatal]
  - Blood creatinine increased [Unknown]
  - Dehydration [Unknown]
